FAERS Safety Report 4370770-X (Version None)
Quarter: 2004Q2

REPORT INFORMATION
  Report Type: 
  Country: None (occurrence: None)
  Receive Date: 20040527
  Receipt Date: 20040507
  Transmission Date: 20050107
  Serious: Yes (Hospitalization)
  Sender: FDA-Public Use
  Company Number: DE_040513546

PATIENT
  Age: 65 Year
  Sex: Female
  Weight: 84 kg

DRUGS (7)
  1. FORTEO [Suspect]
     Indication: HYPOPARATHYROIDISM
     Dosage: 20 UG/1 DAY
     Dates: start: 20031202
  2. ALLOPURINOL [Concomitant]
  3. BONDIOL (ALFACALCIDOL) [Concomitant]
  4. VERAPAMIL [Concomitant]
  5. L-THYROXIN HENNING 125 (LEVOTHYROXINE SODIUM) [Concomitant]
  6. MAGNESIUM ^JENAPHARM^ (MAGNESIUM CARBONATE) [Concomitant]
  7. PANTOPRAZOLE [Concomitant]

REACTIONS (13)
  - AGITATION [None]
  - ASTHENIA [None]
  - BLOOD CALCIUM DECREASED [None]
  - CLAUSTROPHOBIA [None]
  - CONSTIPATION [None]
  - DYSPNOEA [None]
  - HYPERCALCAEMIA [None]
  - HYPERHIDROSIS [None]
  - INSOMNIA [None]
  - NERVOUSNESS [None]
  - PRURITUS [None]
  - SALIVARY HYPERSECRETION [None]
  - TACHYCARDIA [None]
